FAERS Safety Report 22123511 (Version 1)
Quarter: 2023Q1

REPORT INFORMATION
  Report Type: Report from Study
  Country: FR (occurrence: FR)
  Receive Date: 20230322
  Receipt Date: 20230322
  Transmission Date: 20230418
  Serious: Yes (Hospitalization)
  Sender: FDA-Public Use
  Company Number: FR-SERVIER-S23002551

PATIENT

DRUGS (15)
  1. PEGASPARGASE [Suspect]
     Active Substance: PEGASPARGASE
     Indication: Acute lymphocytic leukaemia
     Dosage: 3050 [IU] ON D4
     Route: 042
     Dates: start: 20221212
  2. VINCRISTINE [Suspect]
     Active Substance: VINCRISTINE
     Indication: Acute lymphocytic leukaemia
     Dosage: 1.8 MG ON D1, D8, D15
     Route: 042
     Dates: start: 20221209
  3. ADRIAMYCIN [Suspect]
     Active Substance: DOXORUBICIN HYDROCHLORIDE
     Indication: Acute lymphocytic leukaemia
     Dosage: 30.5 MG ON D1, D8, D15
     Route: 042
     Dates: start: 20221209
  4. DEXAMETHASONE [Suspect]
     Active Substance: DEXAMETHASONE
     Indication: Acute lymphocytic leukaemia
     Dosage: 12.5 MG  FROM D1 TO D7, FROM D15 TO D21
     Route: 048
     Dates: start: 20221209
  5. METHOTREXATE [Suspect]
     Active Substance: METHOTREXATE
     Indication: Acute lymphocytic leukaemia
     Dosage: 15 MG ON D4
     Route: 037
     Dates: start: 20221212
  6. CYTARABINE [Suspect]
     Active Substance: CYTARABINE
     Indication: Acute lymphocytic leukaemia
     Dosage: 30 MG ON D4
     Route: 037
     Dates: start: 20221212
  7. HYDROCORTISONE [Suspect]
     Active Substance: HYDROCORTISONE
     Indication: Acute lymphocytic leukaemia
     Dosage: 15 MG ON D4
     Route: 037
     Dates: start: 20221212
  8. BACTRIM [Concomitant]
     Active Substance: SULFAMETHOXAZOLE\TRIMETHOPRIM
     Indication: Product used for unknown indication
     Dosage: 800 MG
     Route: 048
  9. Calcidose [Concomitant]
     Indication: Product used for unknown indication
     Dosage: 500 MG
     Route: 048
  10. CHOLECALCIFEROL [Concomitant]
     Active Substance: CHOLECALCIFEROL
     Indication: Product used for unknown indication
     Dosage: 100000 [IU]
     Route: 048
  11. METOPIMAZINE [Concomitant]
     Active Substance: METOPIMAZINE
     Indication: Product used for unknown indication
     Dosage: MAX 22.5 MG
     Route: 048
  12. ONDANSETRON [Concomitant]
     Active Substance: ONDANSETRON
     Indication: Product used for unknown indication
     Dosage: MAX 16 MG
     Route: 048
  13. ACETAMINOPHEN [Concomitant]
     Active Substance: ACETAMINOPHEN
     Indication: Product used for unknown indication
     Dosage: MAX 2000 MG
     Route: 048
  14. PHLOROGLUCINOL [Concomitant]
     Active Substance: PHLOROGLUCINOL
     Indication: Product used for unknown indication
     Dosage: MAX 160 MG
     Route: 048
  15. HYDROXYZINE [Concomitant]
     Active Substance: HYDROXYZINE HYDROCHLORIDE
     Indication: Product used for unknown indication
     Dosage: MAX 25 MG
     Route: 048

REACTIONS (2)
  - Diabetes mellitus [Recovered/Resolved]
  - Pancreatitis acute [Recovered/Resolved]

NARRATIVE: CASE EVENT DATE: 20221225
